FAERS Safety Report 8157935-6 (Version None)
Quarter: 2012Q1

REPORT INFORMATION
  Report Type: 
  Country: None (occurrence: None)
  Receive Date: 20120222
  Receipt Date: 20120207
  Transmission Date: 20120608
  Serious: No
  Sender: FDA-Public Use
  Company Number: PHFR2011IE03011

PATIENT
  Sex: Female

DRUGS (6)
  1. CLOZARIL [Suspect]
     Indication: SCHIZOPHRENIA
     Route: 048
     Dates: start: 20101026
  2. QUETIAPINE [Concomitant]
     Dosage: 100 MG/DAY
     Route: 048
  3. ARIPIPRAZOLE [Concomitant]
     Dosage: 20 MG/DAY
     Route: 048
  4. CLOZARIL [Suspect]
     Dosage: REDUCED BY 50 MG
  5. ESCITALOPRAM [Concomitant]
     Dosage: 20 MG/DAY
     Route: 048
  6. QUETIAPINE [Concomitant]
     Dosage: 200 MG/DAY
     Route: 048

REACTIONS (2)
  - MATERNAL EXPOSURE DURING PREGNANCY [None]
  - ANTIPSYCHOTIC DRUG LEVEL INCREASED [None]
